FAERS Safety Report 24214457 (Version 3)
Quarter: 2025Q1

REPORT INFORMATION
  Report Type: Spontaneous
  Country: US (occurrence: US)
  Receive Date: 20240815
  Receipt Date: 20250220
  Transmission Date: 20250409
  Serious: Yes (Other)
  Sender: PFIZER
  Company Number: US-PFIZER INC-202400236030

PATIENT
  Age: 32 Year
  Sex: Male

DRUGS (3)
  1. KETAMINE HYDROCHLORIDE [Suspect]
     Active Substance: KETAMINE HYDROCHLORIDE
     Indication: Hallucination
     Dosage: 1 G, DAILY  WITHIN 2 WEEKS
     Route: 042
     Dates: start: 2023
  2. KETAMINE HYDROCHLORIDE [Suspect]
     Active Substance: KETAMINE HYDROCHLORIDE
     Indication: Dissociation
     Dates: start: 202312
  3. KETAMINE HYDROCHLORIDE [Suspect]
     Active Substance: KETAMINE HYDROCHLORIDE
     Dates: start: 202401

REACTIONS (4)
  - Intentional product misuse [Unknown]
  - Drug use disorder [Unknown]
  - Hallucination [Unknown]
  - Nausea [Unknown]

NARRATIVE: CASE EVENT DATE: 20230101
